FAERS Safety Report 8584041-9 (Version None)
Quarter: 2012Q3

REPORT INFORMATION
  Report Type: 
  Country: None (occurrence: None)
  Receive Date: 20120810
  Receipt Date: 20120723
  Transmission Date: 20120928
  Serious: No
  Sender: FDA-Public Use
  Company Number: US-009507513-1207USA008895

PATIENT

DRUGS (3)
  1. SINGULAIR [Concomitant]
  2. SPIRIVA [Concomitant]
  3. DULERA [Suspect]
     Indication: ASTHMA
     Dosage: 2 DF, BID
     Route: 055
     Dates: start: 20120601, end: 20120723

REACTIONS (2)
  - ORAL PAIN [None]
  - GLOSSODYNIA [None]
